FAERS Safety Report 13831373 (Version 1)
Quarter: 2017Q3

REPORT INFORMATION
  Report Type: Spontaneous
  Country: US (occurrence: US)
  Receive Date: 20170803
  Receipt Date: 20170803
  Transmission Date: 20171127
  Serious: No
  Sender: FDA-Public Use
  Company Number: US-BAYER-2017-143195

PATIENT
  Age: 51 Year
  Sex: Female

DRUGS (1)
  1. CLIMARA [Suspect]
     Active Substance: ESTRADIOL
     Dosage: 0.05 MG
     Route: 062

REACTIONS (3)
  - Intentional product use issue [Unknown]
  - Product adhesion issue [None]
  - Application site erythema [Unknown]
